FAERS Safety Report 25720625 (Version 1)
Quarter: 2025Q3

REPORT INFORMATION
  Report Type: Spontaneous
  Country: KR (occurrence: KR)
  Receive Date: 20250825
  Receipt Date: 20250825
  Transmission Date: 20251020
  Serious: Yes (Death, Hospitalization, Other)
  Sender: AMGEN
  Company Number: KR-AMGEN-KORSP2025168036

PATIENT

DRUGS (1)
  1. ETANERCEPT [Suspect]
     Active Substance: ETANERCEPT
     Indication: Rheumatoid arthritis
     Dosage: UNK, QWK
     Route: 058

REACTIONS (12)
  - Death [Fatal]
  - Skin infection [Unknown]
  - Mucosal infection [Unknown]
  - Pneumonia viral [Unknown]
  - Influenza [Unknown]
  - Hepatitis [Unknown]
  - Viral infection [Unknown]
  - Systemic candida [Unknown]
  - Pneumocystis jirovecii pneumonia [Unknown]
  - Tuberculosis [Unknown]
  - Cytomegalovirus infection [Unknown]
  - Atypical mycobacterial infection [Unknown]
